FAERS Safety Report 7831544-8 (Version None)
Quarter: 2011Q4

REPORT INFORMATION
  Report Type: 
  Country: None (occurrence: None)
  Receive Date: 20111021
  Receipt Date: 20111014
  Transmission Date: 20120403
  Serious: Yes (Hospitalization, Other)
  Sender: FDA-Public Use
  Company Number: CHPA2011US14213

PATIENT
  Age: 57 Year
  Sex: Female
  Weight: 110.66 kg

DRUGS (2)
  1. BENEFIBER W/ WHEAT DEXTRIN [Suspect]
     Indication: MEDICAL DIET
     Dosage: 2 TSP, TID
     Route: 048
     Dates: start: 20110601
  2. DIETS, SPECIALIZED [Suspect]
     Dosage: UNK, UNK
     Dates: start: 20110601

REACTIONS (5)
  - INFECTION [None]
  - WEIGHT DECREASED [None]
  - THERAPEUTIC RESPONSE UNEXPECTED [None]
  - FLATULENCE [None]
  - CONDITION AGGRAVATED [None]
